FAERS Safety Report 8183976-9 (Version None)
Quarter: 2012Q1

REPORT INFORMATION
  Report Type: 
  Country: None (occurrence: None)
  Receive Date: 20120305
  Receipt Date: 20120224
  Transmission Date: 20120608
  Serious: Yes (Hospitalization, Other)
  Sender: FDA-Public Use
  Company Number: BR-JNJFOC-20120109941

PATIENT
  Sex: Male

DRUGS (1)
  1. RISPERDAL CONSTA [Suspect]
     Indication: PRODUCT USED FOR UNKNOWN INDICATION
     Route: 030

REACTIONS (6)
  - CONDITION AGGRAVATED [None]
  - CONVULSION [None]
  - CONFUSIONAL STATE [None]
  - VOMITING [None]
  - PNEUMONIA [None]
  - GAIT DISTURBANCE [None]
